FAERS Safety Report 10180248 (Version 1)
Quarter: 2014Q2

REPORT INFORMATION
  Report Type: Spontaneous
  Country: US (occurrence: US)
  Receive Date: 20140519
  Receipt Date: 20140519
  Transmission Date: 20141212
  Serious: No
  Sender: FDA-Public Use
  Company Number: US-AMGEN INC.-USASP2013087001

PATIENT
  Sex: Female

DRUGS (1)
  1. PROLIA [Suspect]
     Indication: OSTEOPOROSIS POSTMENOPAUSAL
     Dosage: UNK
     Route: 065

REACTIONS (12)
  - Oropharyngeal pain [Unknown]
  - Chills [Unknown]
  - Dysphonia [Unknown]
  - Headache [Unknown]
  - Ear pain [Unknown]
  - Neck pain [Unknown]
  - Nasopharyngitis [Unknown]
  - Influenza [Unknown]
  - Influenza like illness [Unknown]
  - Back pain [Unknown]
  - Myalgia [Unknown]
  - Gastrooesophageal reflux disease [Unknown]
